FAERS Safety Report 25980140 (Version 3)
Quarter: 2025Q4

REPORT INFORMATION
  Report Type: Spontaneous
  Country: EU (occurrence: EU)
  Receive Date: 20251030
  Receipt Date: 20251230
  Transmission Date: 20260117
  Serious: Yes (Hospitalization, Other)
  Sender: NOVARTIS
  Company Number: EU-002147023-NVSC2025FR165229

PATIENT
  Age: 3 Year
  Sex: Female
  Weight: 17.3 kg

DRUGS (10)
  1. TRAMETINIB [Suspect]
     Active Substance: TRAMETINIB
     Indication: Optic glioma
     Dosage: UNK UNK, QD (0.5 MG/10 ML) (ORAL SUSPENSION)
     Route: 050
     Dates: start: 20250611, end: 20250906
  2. RIVOTRIL [Concomitant]
     Active Substance: CLONAZEPAM
     Indication: Epilepsy
     Dosage: UNK (CAPSULE/ORAL SUSPENSION)
     Route: 050
     Dates: start: 2024
  3. VIMPAT [Concomitant]
     Active Substance: LACOSAMIDE
     Indication: Epilepsy
     Dosage: UNK (CAPSULE/ORAL SUSPENSION)
     Route: 050
     Dates: start: 2024
  4. TOPIRAMATE [Concomitant]
     Active Substance: TOPIRAMATE
     Indication: Epilepsy
     Dosage: UNK (CAPSULE/ORAL SUSPENSION)
     Route: 050
     Dates: start: 2024
  5. LEVETIRACETAM [Concomitant]
     Active Substance: LEVETIRACETAM
     Indication: Epilepsy
     Dosage: UNK (CAPSULE/ORAL SUSPENSION)
     Route: 050
     Dates: start: 2024
  6. ACYCLOVIR [Concomitant]
     Active Substance: ACYCLOVIR
     Indication: Oral herpes
     Dosage: UNK
     Route: 050
     Dates: start: 2024
  7. LEVOTHYROXINE [Concomitant]
     Active Substance: LEVOTHYROXINE
     Indication: Hypopituitarism
     Dosage: UNK
     Route: 065
     Dates: start: 2024
  8. HYDROCORTISONE [Concomitant]
     Active Substance: HYDROCORTISONE
     Indication: Hypopituitarism
     Dosage: UNK
     Route: 065
     Dates: start: 2024
  9. ASPIRIN LYSINE [Concomitant]
     Active Substance: ASPIRIN LYSINE
     Indication: Cerebrovascular accident
     Dosage: UNK
     Route: 065
     Dates: start: 2024, end: 20250906
  10. DESMOPRESSIN ACETATE [Concomitant]
     Active Substance: DESMOPRESSIN ACETATE
     Indication: Hypopituitarism
     Dosage: UNK
     Route: 065
     Dates: start: 2024

REACTIONS (6)
  - Enterocolitis haemorrhagic [Recovered/Resolved]
  - Peritonitis [Unknown]
  - Paronychia [Unknown]
  - Rash pustular [Unknown]
  - Folliculitis [Recovered/Resolved]
  - Off label use [Unknown]

NARRATIVE: CASE EVENT DATE: 20250812
